FAERS Safety Report 9600290 (Version 1)
Quarter: 2013Q4

REPORT INFORMATION
  Report Type: Spontaneous
  Country: US (occurrence: US)
  Receive Date: 20131004
  Receipt Date: 20131004
  Transmission Date: 20140711
  Serious: No
  Sender: FDA-Public Use
  Company Number: US-AMGEN-USASP2013034069

PATIENT
  Age: 26 Year
  Sex: Male
  Weight: 133.79 kg

DRUGS (7)
  1. ENBREL [Suspect]
     Indication: PRODUCT USED FOR UNKNOWN INDICATION
     Dosage: 50 MG, QWK
     Route: 058
  2. EFFEXOR [Concomitant]
     Dosage: 75 MG, UNK
  3. PREDNISONE [Concomitant]
     Dosage: 20 MG, UNK
  4. CLOBETASOL [Concomitant]
     Dosage: 0.05 %, UNK
  5. MULTIVITAMINS, PLAIN [Concomitant]
     Dosage: UNK
  6. FOLIC ACID [Concomitant]
     Dosage: UNK
  7. METHOTREXATE [Concomitant]
     Dosage: 20 MG, UNK

REACTIONS (1)
  - Drug ineffective [Unknown]
